FAERS Safety Report 19036361 (Version 1)
Quarter: 2021Q1

REPORT INFORMATION
  Report Type: Spontaneous
  Country: US (occurrence: US)
  Receive Date: 20210320
  Receipt Date: 20210320
  Transmission Date: 20210420
  Serious: Yes (Other)
  Sender: FDA-Public Use
  Company Number: None

PATIENT
  Age: 26 Year
  Sex: Male
  Weight: 67.5 kg

DRUGS (5)
  1. CAMBIA [Concomitant]
     Active Substance: DICLOFENAC POTASSIUM
  2. VITAMIN D [Concomitant]
     Active Substance: VITAMIN D NOS
  3. MAXALT [Concomitant]
     Active Substance: RIZATRIPTAN BENZOATE
  4. AIMOVIG (ERENUMAB) [Suspect]
     Active Substance: ERENUMAB
     Indication: MIGRAINE
     Dosage: ?          QUANTITY:1 INJECTION(S);OTHER FREQUENCY:1/MONTH;OTHER ROUTE:INJECTION INTO THIGH?
     Dates: start: 20191125, end: 20200504
  5. EFFEXOR [Concomitant]
     Active Substance: VENLAFAXINE HYDROCHLORIDE

REACTIONS (6)
  - Vitreous floaters [None]
  - Groin pain [None]
  - Back pain [None]
  - Testicular pain [None]
  - Vision blurred [None]
  - Pain in extremity [None]

NARRATIVE: CASE EVENT DATE: 20200221
